FAERS Safety Report 19204591 (Version 1)
Quarter: 2021Q2

REPORT INFORMATION
  Report Type: Spontaneous
  Country: US (occurrence: US)
  Receive Date: 20210430
  Receipt Date: 20210430
  Transmission Date: 20210717
  Serious: No
  Sender: FDA-Public Use
  Company Number: None

PATIENT
  Age: 30 Year
  Sex: Female

DRUGS (1)
  1. GLATIRAMER ACETATE (12 X 1ML) 40MG/ML MYLAN [Suspect]
     Active Substance: GLATIRAMER ACETATE
     Indication: MULTIPLE SCLEROSIS
     Dosage: 40MG 3X A WEEK INJECT
     Dates: start: 20201209, end: 20210412

REACTIONS (3)
  - Treatment noncompliance [None]
  - Multiple sclerosis [None]
  - Spinal pain [None]

NARRATIVE: CASE EVENT DATE: 20210413
